FAERS Safety Report 8901124 (Version 4)
Quarter: 2013Q3

REPORT INFORMATION
  Report Type: Spontaneous
  Country: US (occurrence: US)
  Receive Date: 20121109
  Receipt Date: 20130927
  Transmission Date: 20140515
  Serious: Yes (Hospitalization, Other)
  Sender: FDA-Public Use
  Company Number: US-009507513-1211USA000400

PATIENT
  Sex: Female
  Weight: 82.99 kg

DRUGS (3)
  1. NUVARING [Suspect]
     Indication: MENSTRUAL CYCLE MANAGEMENT
     Dosage: UNK
     Route: 067
     Dates: start: 200910, end: 20091125
  2. NUVARING [Suspect]
     Indication: MENORRHAGIA
     Dosage: UNK
     Route: 067
     Dates: start: 20060501, end: 200903
  3. NUVARING [Suspect]
     Indication: CONTRACEPTION

REACTIONS (16)
  - Acute myocardial infarction [Unknown]
  - Off label use [Unknown]
  - Dysuria [Unknown]
  - Vomiting [Unknown]
  - Diarrhoea [Unknown]
  - Syncope [Unknown]
  - Coronary artery dissection [Unknown]
  - Prehypertension [Unknown]
  - Haematochezia [Recovered/Resolved]
  - Haemorrhoids [Unknown]
  - Musculoskeletal pain [Unknown]
  - Vulvovaginal pruritus [Unknown]
  - Dysfunctional uterine bleeding [Unknown]
  - Adjustment disorder with mixed anxiety and depressed mood [Unknown]
  - Angina unstable [Unknown]
  - Pain in extremity [Unknown]
